FAERS Safety Report 9734573 (Version 2)
Quarter: 2014Q1

REPORT INFORMATION
  Report Type: Spontaneous
  Country: JP (occurrence: JP)
  Receive Date: 20131206
  Receipt Date: 20140205
  Transmission Date: 20141002
  Serious: Yes (Hospitalization)
  Sender: FDA-Public Use
  Company Number: JP-AMGEN-JPNSP2013085596

PATIENT
  Age: 7 Decade
  Sex: Male

DRUGS (2)
  1. RANMARK [Suspect]
     Indication: METASTASES TO BONE
     Dosage: UNKNOWN
     Route: 065
     Dates: start: 201212, end: 201302
  2. SUNITINIB [Suspect]
     Indication: RENAL CELL CARCINOMA
     Dosage: UNKNOWN
     Route: 065
     Dates: start: 201210, end: 201303

REACTIONS (2)
  - Osteomyelitis [Unknown]
  - Cellulitis [Unknown]
